FAERS Safety Report 24729313 (Version 2)
Quarter: 2025Q1

REPORT INFORMATION
  Report Type: Spontaneous
  Country: US (occurrence: US)
  Receive Date: 20241213
  Receipt Date: 20250128
  Transmission Date: 20250408
  Serious: Yes (Disabling, Other)
  Sender: REGENERON
  Company Number: US-REGENERON PHARMACEUTICALS, INC.-2024-142006

PATIENT
  Sex: Male

DRUGS (9)
  1. EYLEA HD [Suspect]
     Active Substance: AFLIBERCEPT
     Indication: Neovascular age-related macular degeneration
     Dosage: 0.05ML, EVERY 8 WEEKS, IN THE LEFT EYE; STRENGTH: 8 MG VIAL KIT; FORMULAION: HD VIAL (8MG VIAL KIT),
     Dates: start: 20240815, end: 20240815
  2. EYLEA HD [Suspect]
     Active Substance: AFLIBERCEPT
     Dosage: 8 MG, EVERY 8 WEEKS, IN THE LEFT EYE; FORMULAION: HD VIAL (8MG VIAL KIT), 114.3 MG/ML
     Dates: start: 20241017, end: 20241017
  3. HYDROCHLOROTHIAZIDE [Concomitant]
     Active Substance: HYDROCHLOROTHIAZIDE
     Indication: Product used for unknown indication
  4. OLMESARTAN [Concomitant]
     Active Substance: OLMESARTAN
     Indication: Product used for unknown indication
  5. TESTIM [Concomitant]
     Active Substance: TESTOSTERONE
     Indication: Product used for unknown indication
  6. LEVOTHYROXINE [Concomitant]
     Active Substance: LEVOTHYROXINE
     Indication: Product used for unknown indication
  7. DUTASTERIDE [Concomitant]
     Active Substance: DUTASTERIDE
     Indication: Product used for unknown indication
  8. EZETIMIBE [Concomitant]
     Active Substance: EZETIMIBE
     Indication: Product used for unknown indication
  9. CIALIS [Concomitant]
     Active Substance: TADALAFIL
     Indication: Product used for unknown indication

REACTIONS (6)
  - Blindness unilateral [Recovering/Resolving]
  - Retinal haemorrhage [Unknown]
  - Suspected product contamination [Unknown]
  - Endophthalmitis [Recovered/Resolved]
  - Intraocular pressure increased [Unknown]
  - Incorrect dose administered [Unknown]

NARRATIVE: CASE EVENT DATE: 20240815
